FAERS Safety Report 25684443 (Version 1)
Quarter: 2025Q3

REPORT INFORMATION
  Report Type: Report from Study
  Country: US (occurrence: US)
  Receive Date: 20250815
  Receipt Date: 20250815
  Transmission Date: 20251020
  Serious: Yes (Death, Other)
  Sender: SUNOVION
  Company Number: US-SUMITOMO PHARMA SWITZERLAND GMBH-2025SPA005151

PATIENT
  Age: 76 Year
  Sex: Male

DRUGS (7)
  1. ORGOVYX [Suspect]
     Active Substance: RELUGOLIX
     Indication: Prostate cancer
     Dosage: 120 MG, QD
     Route: 048
     Dates: start: 20250408
  2. ATORVASTATIN [Concomitant]
     Active Substance: ATORVASTATIN
  3. CASODEX [Concomitant]
     Active Substance: BICALUTAMIDE
  4. CIPROFLOXACIN [Concomitant]
     Active Substance: CIPROFLOXACIN
  5. FOSAMAX [Concomitant]
     Active Substance: ALENDRONATE SODIUM
  6. LUPRON [Concomitant]
     Active Substance: LEUPROLIDE ACETATE
  7. XTANDI [Concomitant]
     Active Substance: ENZALUTAMIDE

REACTIONS (4)
  - Death [Fatal]
  - Dizziness [Unknown]
  - Diarrhoea [Unknown]
  - Fatigue [Unknown]
